FAERS Safety Report 9144374 (Version 2)
Quarter: 2013Q2

REPORT INFORMATION
  Report Type: Report from Study
  Country: JP (occurrence: JP)
  Receive Date: 20130306
  Receipt Date: 20130501
  Transmission Date: 20140414
  Serious: Yes (Death, Other)
  Sender: FDA-Public Use
  Company Number: JP-ROCHE-1198146

PATIENT
  Age: 77 Year
  Sex: Male
  Weight: 46 kg

DRUGS (10)
  1. DEPAKENE [Concomitant]
     Route: 065
     Dates: start: 20101022, end: 20101105
  2. NOVORAPID [Concomitant]
     Route: 065
     Dates: start: 20101022, end: 20101105
  3. THYRADIN [Concomitant]
     Route: 065
     Dates: start: 20101022, end: 20101105
  4. THYRADIN [Concomitant]
     Route: 065
     Dates: end: 20101105
  5. OMALIZUMAB [Suspect]
     Indication: ASTHMA
     Route: 058
     Dates: start: 20101022, end: 20101022
  6. ADOAIR [Concomitant]
     Route: 065
     Dates: end: 20101105
  7. SINGULAIR [Concomitant]
     Route: 065
     Dates: start: 20100831
  8. PREDNISOLONE [Concomitant]
     Route: 065
     Dates: start: 20100907, end: 20101009
  9. ITRIZOLE [Concomitant]
     Route: 065
     Dates: start: 20101022, end: 20101105
  10. THEO-DUR [Concomitant]
     Route: 065
     Dates: start: 20100831

REACTIONS (3)
  - Pneumonia pseudomonas aeruginosa [Fatal]
  - Cytomegalovirus infection [Fatal]
  - Pseudomonas infection [Unknown]
